FAERS Safety Report 17395508 (Version 1)
Quarter: 2020Q1

REPORT INFORMATION
  Report Type: Spontaneous
  Country: DE (occurrence: DE)
  Receive Date: 20200210
  Receipt Date: 20200210
  Transmission Date: 20200409
  Serious: Yes (Other)
  Sender: FDA-Public Use
  Company Number: DE-EISAI MEDICAL RESEARCH-EC-2020-069435

PATIENT
  Age: 0 Day
  Sex: Female
  Weight: 2.71 kg

DRUGS (3)
  1. TOPIRAMATE. [Suspect]
     Active Substance: TOPIRAMATE
     Indication: FOETAL EXPOSURE DURING PREGNANCY
     Dosage: MOTHER WAS TAKING 100 MG 3 TIMES DAILY DURING 0 - 40 GESTATIONAL WEEK
     Route: 064
     Dates: end: 20190712
  2. INOVELON [Suspect]
     Active Substance: RUFINAMIDE
     Indication: FOETAL EXPOSURE DURING PREGNANCY
     Dosage: MOTHER WAS TAKING 1600 MG DAILY DURING 0 - 40 GESTATIONAL WEEK
     Route: 064
     Dates: end: 20190712
  3. FOLSON [Concomitant]
     Indication: PROPHYLAXIS OF NEURAL TUBE DEFECT
     Dosage: MOTHER WAS TAKING 5 MG DAILY DURING 4.3. - 40 GESTATIONAL WEEK
     Route: 064
     Dates: end: 20190712

REACTIONS (2)
  - Small for dates baby [Recovered/Resolved]
  - Foetal exposure during pregnancy [Unknown]

NARRATIVE: CASE EVENT DATE: 20190712
